FAERS Safety Report 18554479 (Version 1)
Quarter: 2020Q4

REPORT INFORMATION
  Report Type: Spontaneous
  Country: US (occurrence: US)
  Receive Date: 20201127
  Receipt Date: 20201127
  Transmission Date: 20210114
  Serious: Yes (Hospitalization)
  Sender: FDA-Public Use
  Company Number: US-IPSEN BIOPHARMACEUTICALS, INC.-2020-23506

PATIENT
  Sex: Female

DRUGS (1)
  1. ONIVYDE [Suspect]
     Active Substance: IRINOTECAN HYDROCHLORIDE
     Indication: PANCREATIC CARCINOMA
     Dosage: 4.3 MG/ ML (10 ML SDV), INFUSE 103 MG INTRAVENOUSLY ON DAY 1 AND DAY 15 EVERY 28 DAYS
     Route: 042

REACTIONS (1)
  - Hospitalisation [Unknown]
